FAERS Safety Report 7007236-4 (Version None)
Quarter: 2010Q3

REPORT INFORMATION
  Report Type: 
  Country: None (occurrence: None)
  Receive Date: 20100917
  Receipt Date: 20100914
  Transmission Date: 20110219
  Serious: Yes (Other)
  Sender: FDA-Public Use
  Company Number: A0881032A

PATIENT
  Age: 77 Year
  Sex: Female

DRUGS (1)
  1. METHYLCELLULOSE CAPLET (METHYLCELLULOSE) [Suspect]
     Indication: PRODUCT USED FOR UNKNOWN INDICATION
     Dosage: ORAL
     Route: 048

REACTIONS (2)
  - DRUG INEFFECTIVE [None]
  - RECTAL HAEMORRHAGE [None]
